FAERS Safety Report 8383066-6 (Version None)
Quarter: 2012Q2

REPORT INFORMATION
  Report Type: 
  Country: None (occurrence: None)
  Receive Date: 20120524
  Receipt Date: 20120514
  Transmission Date: 20120825
  Serious: Yes (Death)
  Sender: FDA-Public Use
  Company Number: JP-JNJFOC-20120514095

PATIENT
  Sex: Female

DRUGS (2)
  1. ORTHO-NOVUM 1/35-21 [Suspect]
     Indication: UTERINE LEIOMYOMA
     Route: 048
     Dates: start: 20080101
  2. ORTHO-NOVUM 1/35-21 [Suspect]
     Indication: MENORRHAGIA
     Route: 048
     Dates: start: 20080101

REACTIONS (2)
  - OFF LABEL USE [None]
  - CEREBRAL VENOUS THROMBOSIS [None]
